FAERS Safety Report 24320338 (Version 1)
Quarter: 2024Q3

REPORT INFORMATION
  Report Type: Spontaneous
  Country: US (occurrence: None)
  Receive Date: 20240915
  Receipt Date: 20240915
  Transmission Date: 20241017
  Serious: No
  Sender: ASTRAZENECA
  Company Number: 2024A202758

PATIENT
  Sex: Male

DRUGS (2)
  1. IMFINZI [Suspect]
     Active Substance: DURVALUMAB
     Indication: Hepatic cancer
     Dates: start: 202403
  2. IMJUDO [Suspect]
     Active Substance: TREMELIMUMAB\TREMELIMUMAB-ACTL
     Indication: Hepatic cancer
     Route: 042

REACTIONS (2)
  - Fatigue [Unknown]
  - Peripheral swelling [Recovered/Resolved]
